FAERS Safety Report 25093232 (Version 2)
Quarter: 2025Q2

REPORT INFORMATION
  Report Type: Report from Study
  Country: US (occurrence: US)
  Receive Date: 20250319
  Receipt Date: 20250404
  Transmission Date: 20250716
  Serious: Yes (Death, Other)
  Sender: TAKEDA
  Company Number: US-TAKEDA-2024TUS085631

PATIENT
  Sex: Male
  Weight: 74.3 kg

DRUGS (3)
  1. IXAZOMIB [Suspect]
     Active Substance: IXAZOMIB
     Indication: Plasma cell myeloma
  2. IXAZOMIB [Suspect]
     Active Substance: IXAZOMIB
     Dosage: 4 MILLIGRAM, Q2WEEKS
  3. IXAZOMIB [Suspect]
     Active Substance: IXAZOMIB
     Dates: start: 20250120, end: 20250127

REACTIONS (4)
  - Plasma cell myeloma [Fatal]
  - Lactic acidosis [Fatal]
  - Anaemia [Fatal]
  - Off label use [Unknown]
